FAERS Safety Report 25258075 (Version 1)
Quarter: 2025Q2

REPORT INFORMATION
  Report Type: Report from Study
  Country: US (occurrence: US)
  Receive Date: 20250501
  Receipt Date: 20250501
  Transmission Date: 20250717
  Serious: Yes (Hospitalization, Other)
  Sender: ACADIA PHARMACEUTICALS
  Company Number: US-ACADIA PHARMACEUTICALS INC.-ACA-2025-PIM-004931

PATIENT
  Age: 77 Year
  Sex: Female

DRUGS (7)
  1. NUPLAZID [Suspect]
     Active Substance: PIMAVANSERIN TARTRATE
     Indication: Parkinson^s disease psychosis
     Dosage: 34 MILLIGRAM, QD
     Route: 048
     Dates: start: 20250207
  2. CLARITHROMYCIN [Concomitant]
     Active Substance: CLARITHROMYCIN
     Indication: Urinary tract infection
  3. ATIVAN [Concomitant]
     Active Substance: LORAZEPAM
  4. CARBIDOPA AND LEVODOPA [Concomitant]
     Active Substance: CARBIDOPA\LEVODOPA
  5. SERTRALINE [Concomitant]
     Active Substance: SERTRALINE HYDROCHLORIDE
  6. CIPROFLOXACIN [Concomitant]
     Active Substance: CIPROFLOXACIN
  7. TYLENOL [Concomitant]
     Active Substance: ACETAMINOPHEN

REACTIONS (2)
  - Hip fracture [Recovered/Resolved]
  - Fall [Recovered/Resolved]

NARRATIVE: CASE EVENT DATE: 20250411
